FAERS Safety Report 14354905 (Version 1)
Quarter: 2018Q1

REPORT INFORMATION
  Report Type: Spontaneous
  Country: US (occurrence: US)
  Receive Date: 20180105
  Receipt Date: 20180105
  Transmission Date: 20180509
  Serious: Yes (Other)
  Sender: FDA-Public Use
  Company Number: US-BAYER-2018-001626

PATIENT

DRUGS (1)
  1. GADAVIST [Suspect]
     Active Substance: GADOBUTROL
     Indication: NUCLEAR MAGNETIC RESONANCE IMAGING
     Dosage: UNK, ONCE
     Route: 042
     Dates: start: 20171223, end: 20171223

REACTIONS (4)
  - Presyncope [None]
  - Hyperhidrosis [None]
  - Flushing [None]
  - Loss of consciousness [None]

NARRATIVE: CASE EVENT DATE: 20171223
